FAERS Safety Report 8546905-1 (Version None)
Quarter: 2012Q3

REPORT INFORMATION
  Report Type: 
  Country: None (occurrence: None)
  Receive Date: 20120727
  Receipt Date: 20120207
  Transmission Date: 20120928
  Serious: No
  Sender: FDA-Public Use
  Company Number: US-ASTRAZENECA-2012SE03666

PATIENT
  Age: 39 Year
  Sex: Male
  Weight: 113.4 kg

DRUGS (4)
  1. SEROQUEL [Suspect]
     Route: 048
  2. BLOOD PRESSURE MEDICATION [Concomitant]
     Indication: BLOOD PRESSURE ABNORMAL
  3. SEROQUEL [Suspect]
     Indication: BIPOLAR DISORDER
     Route: 048
  4. DOMATEL [Concomitant]
     Indication: GASTRIC HYPOMOTILITY

REACTIONS (2)
  - DRUG DOSE OMISSION [None]
  - ANGER [None]
